FAERS Safety Report 7650123-9 (Version None)
Quarter: 2011Q3

REPORT INFORMATION
  Report Type: 
  Country: None (occurrence: None)
  Receive Date: 20110802
  Receipt Date: 20110721
  Transmission Date: 20111222
  Serious: Yes (Other)
  Sender: FDA-Public Use
  Company Number: US-ROCHE-743274

PATIENT
  Sex: Female
  Weight: 54.4 kg

DRUGS (1)
  1. ACCUTANE [Suspect]
     Route: 065
     Dates: start: 19990101, end: 20000101

REACTIONS (6)
  - BIPOLAR DISORDER [None]
  - CROHN'S DISEASE [None]
  - GASTROINTESTINAL INJURY [None]
  - LIP DRY [None]
  - DRY EYE [None]
  - DEPRESSION [None]
